FAERS Safety Report 7698718-0 (Version None)
Quarter: 2011Q3

REPORT INFORMATION
  Report Type: 
  Country: None (occurrence: None)
  Receive Date: 20110819
  Receipt Date: 20110810
  Transmission Date: 20111222
  Serious: Yes (Hospitalization)
  Sender: FDA-Public Use
  Company Number: DE-ABBOTT-11P-062-0725171-00

PATIENT
  Age: 29 Year
  Sex: Female

DRUGS (3)
  1. LEUPROLIDE ACETATE [Suspect]
     Indication: OVARIAN DISORDER
  2. NOVAMINSULFON [Concomitant]
     Indication: PAIN
     Route: 048
     Dates: start: 20110225
  3. LEUPROLIDE ACETATE [Suspect]
     Indication: PROPHYLAXIS
     Route: 058
     Dates: start: 20110301, end: 20110304

REACTIONS (3)
  - NAUSEA [None]
  - CONSTIPATION [None]
  - ABDOMINAL PAIN [None]
